FAERS Safety Report 25847269 (Version 1)
Quarter: 2025Q3

REPORT INFORMATION
  Report Type: Spontaneous
  Country: US (occurrence: US)
  Receive Date: 20250925
  Receipt Date: 20250925
  Transmission Date: 20251021
  Serious: No
  Sender: TEVA
  Company Number: US-TEVA-VS-3369045

PATIENT

DRUGS (1)
  1. AJOVY [Suspect]
     Active Substance: FREMANEZUMAB-VFRM
     Indication: Migraine
     Route: 065

REACTIONS (6)
  - Accidental exposure to product [Unknown]
  - Device use error [Unknown]
  - Product knowledge deficit [Unknown]
  - Device malfunction [Unknown]
  - Product dose omission in error [Unknown]
  - Headache [Unknown]

NARRATIVE: CASE EVENT DATE: 20250101
